FAERS Safety Report 8386820-X (Version None)
Quarter: 2012Q2

REPORT INFORMATION
  Report Type: 
  Country: None (occurrence: None)
  Receive Date: 20120523
  Receipt Date: 20120523
  Transmission Date: 20120825
  Serious: No
  Sender: FDA-Public Use
  Company Number: None

PATIENT
  Age: 42 Year
  Sex: Male

DRUGS (1)
  1. OXYCODONE HYDROCHLORIDE [Suspect]
     Route: 048
     Dates: start: 20120418, end: 20120418

REACTIONS (9)
  - DIZZINESS [None]
  - PRODUCT SUBSTITUTION ISSUE [None]
  - PARAESTHESIA [None]
  - NAUSEA [None]
  - INSOMNIA [None]
  - ASTHENIA [None]
  - HYPOAESTHESIA [None]
  - PRODUCT QUALITY ISSUE [None]
  - TREMOR [None]
